FAERS Safety Report 9380434 (Version 1)
Quarter: 2013Q2

REPORT INFORMATION
  Report Type: Spontaneous
  Country: NL (occurrence: None)
  Receive Date: 20130628
  Receipt Date: 20130628
  Transmission Date: 20140414
  Serious: Yes (Other)
  Sender: FDA-Public Use
  Company Number: 2013AP006222

PATIENT
  Age: 16 Week
  Sex: Male

DRUGS (1)
  1. PREDNISOLONE (PREDNISOLONE) [Suspect]
     Indication: HAEMANGIOMA
     Dosage: TOTAL

REACTIONS (3)
  - Increased appetite [None]
  - Cushingoid [None]
  - Toxicity to various agents [None]
